FAERS Safety Report 5977060-X (Version None)
Quarter: 2008Q4

REPORT INFORMATION
  Report Type: 
  Country: None (occurrence: None)
  Receive Date: 20081203
  Receipt Date: 20081201
  Transmission Date: 20090506
  Serious: Yes (Hospitalization)
  Sender: FDA-Public Use
  Company Number: US-BIOGENIDEC-2008BI001064

PATIENT
  Age: 51 Year
  Sex: Female
  Weight: 59 kg

DRUGS (2)
  1. AVONEX [Suspect]
     Indication: MULTIPLE SCLEROSIS
     Route: 030
     Dates: start: 20030621
  2. AVONEX [Suspect]
     Route: 030

REACTIONS (6)
  - ABASIA [None]
  - ADVERSE DRUG REACTION [None]
  - HYPOAESTHESIA [None]
  - ISCHAEMIC STROKE [None]
  - LOSS OF CONTROL OF LEGS [None]
  - MEMORY IMPAIRMENT [None]
